FAERS Safety Report 6536560-4 (Version None)
Quarter: 2010Q1

REPORT INFORMATION
  Report Type: 
  Country: None (occurrence: None)
  Receive Date: 20100106
  Receipt Date: 20091216
  Transmission Date: 20100710
  Serious: Yes (Life-Threatening)
  Sender: FDA-Public Use
  Company Number: B0621381A

PATIENT
  Age: 38 Year
  Sex: Male

DRUGS (3)
  1. AMOXICILLIN TRIHYDRATE + POTASSIUM CLAVUNATE (FORMULATION (AMOX. TRIHY [Suspect]
     Indication: TOOTH ABSCESS
     Dosage: 1000 MG / TWICE PER DAY / UNKNOWN
  2. PROPHLTHIOURACIL (PROPYLTHIOURACIL) (FORMULATION UNKNOWN) [Suspect]
     Indication: HYPERTHYROIDISM
  3. NAPROXEN [Suspect]
     Indication: TOOTH ABSCESS

REACTIONS (6)
  - BLOOD FIBRINOGEN ABNORMAL [None]
  - FIBRIN D DIMER INCREASED [None]
  - IMPAIRED HEALING [None]
  - PROTEIN C DECREASED [None]
  - PURPURA FULMINANS [None]
  - SKIN NECROSIS [None]
